FAERS Safety Report 10176721 (Version 1)
Quarter: 2014Q2

REPORT INFORMATION
  Report Type: Report from Study
  Country: BR (occurrence: BR)
  Receive Date: 20140516
  Receipt Date: 20140516
  Transmission Date: 20141212
  Serious: Yes (Other)
  Sender: FDA-Public Use
  Company Number: BR-BRISTOL-MYERS SQUIBB COMPANY-20762498

PATIENT
  Age: 63 Year
  Sex: Male
  Weight: 72 kg

DRUGS (1)
  1. ERBITUX SOLN FOR INF [Suspect]
     Indication: HEPATIC CANCER
     Dosage: LAST INFUSION: 03APR2014
     Route: 042
     Dates: start: 2008

REACTIONS (11)
  - Thrombosis [Unknown]
  - Abdominal hernia [Unknown]
  - Nervousness [Unknown]
  - Blood pressure increased [Unknown]
  - Pyrexia [Unknown]
  - Skin fissures [Not Recovered/Not Resolved]
  - Pain [Not Recovered/Not Resolved]
  - Onychoclasis [Unknown]
  - Acne [Unknown]
  - Dry skin [Not Recovered/Not Resolved]
  - Rash pustular [Unknown]
